FAERS Safety Report 9771446 (Version 1)
Quarter: 2013Q4

REPORT INFORMATION
  Report Type: Report from Study
  Country: CA (occurrence: CA)
  Receive Date: 20131219
  Receipt Date: 20131219
  Transmission Date: 20140711
  Serious: Yes (Life-Threatening)
  Sender: FDA-Public Use
  Company Number: CA-ROCHE-1322111

PATIENT
  Age: 85 Year
  Sex: Male

DRUGS (4)
  1. RANIBIZUMAB [Suspect]
     Indication: AGE-RELATED MACULAR DEGENERATION
     Dosage: 0.05 CC, 22/AUG/2013, THE PATIENT RECEIVED RECENT RANIBIZUMAB DOSE
     Route: 050
     Dates: start: 20120504
  2. LIPITOR [Concomitant]
     Route: 065
     Dates: start: 2000
  3. ATENOLOL [Concomitant]
     Route: 065
     Dates: start: 2000
  4. CARDIZEM [Concomitant]
     Route: 065
     Dates: start: 2000

REACTIONS (1)
  - Cerebrovascular accident [Recovering/Resolving]
